FAERS Safety Report 15479787 (Version 1)
Quarter: 2018Q4

REPORT INFORMATION
  Report Type: Spontaneous
  Country: BE (occurrence: BE)
  Receive Date: 20181009
  Receipt Date: 20181009
  Transmission Date: 20190205
  Serious: Yes (Disabling, Other)
  Sender: FDA-Public Use
  Company Number: BE-GLAXOSMITHKLINE-BE2018GSK107858

PATIENT
  Age: 55 Year
  Sex: Male
  Weight: 71 kg

DRUGS (7)
  1. NASONEX [Concomitant]
     Active Substance: MOMETASONE FUROATE
     Indication: RHINITIS
     Dosage: UNK
     Route: 055
     Dates: start: 201307
  2. MONTELUKAST [Concomitant]
     Active Substance: MONTELUKAST SODIUM
     Indication: ASTHMA
     Dosage: 10 MG, QD
     Route: 048
  3. MEDROL [Concomitant]
     Active Substance: METHYLPREDNISOLONE
     Indication: PRODUCT USED FOR UNKNOWN INDICATION
     Dosage: UNK
  4. NUCALA [Suspect]
     Active Substance: MEPOLIZUMAB
     Indication: ASTHMA
     Dosage: 100 MG, Z
     Route: 058
     Dates: start: 201510
  5. RELVAR ELLIPTA [Concomitant]
     Active Substance: FLUTICASONE FUROATE\VILANTEROL TRIFENATATE
     Indication: ASTHMA
     Dosage: UNK UNK, QD
     Route: 055
  6. FLIXOTIDE [Concomitant]
     Active Substance: FLUTICASONE PROPIONATE
     Indication: ASTHMA
     Dosage: 500 ?G, QD
     Dates: end: 201801
  7. XANTHIUM (THEOPHYLLINE) [Concomitant]
     Active Substance: THEOPHYLLINE
     Indication: ASTHMA
     Dosage: 200 MG, QD
     Route: 048

REACTIONS (4)
  - Otitis media [Unknown]
  - Feeling abnormal [Unknown]
  - Tinnitus [Unknown]
  - Sudden hearing loss [Recovering/Resolving]

NARRATIVE: CASE EVENT DATE: 201712
